FAERS Safety Report 8813600 (Version 3)
Quarter: 2012Q4

REPORT INFORMATION
  Report Type: Report from Study
  Country: JP (occurrence: JP)
  Receive Date: 20120927
  Receipt Date: 20121114
  Transmission Date: 20130627
  Serious: Yes (Other)
  Sender: FDA-Public Use
  Company Number: JP-PFIZER INC-2012235273

PATIENT
  Age: 73 Year
  Sex: Male
  Weight: 65 kg

DRUGS (10)
  1. XALKORI [Suspect]
     Indication: NON-SMALL CELL LUNG CANCER
     Dosage: 250 mg, 2x/day
     Route: 048
     Dates: start: 20120731, end: 20120824
  2. XALKORI [Suspect]
     Dosage: 200 mg, 2x/day
     Route: 048
     Dates: start: 20120919
  3. MAGMITT [Concomitant]
     Dosage: 660 mg, 3x/day
     Route: 048
     Dates: start: 20120731
  4. NAUZELIN [Concomitant]
     Dosage: 10 mg, 3x/day
     Route: 048
     Dates: start: 20120731, end: 20120806
  5. NAUZELIN [Concomitant]
     Dosage: 10 mg, as needed
     Route: 048
     Dates: start: 20120807
  6. LAC B [Concomitant]
     Dosage: 1 g, as needed
     Route: 048
     Dates: start: 20120804
  7. LENDORMIN D [Concomitant]
     Dosage: 0.25 mg, as needed
     Route: 048
     Dates: start: 20120809
  8. GATIFLO [Concomitant]
     Dosage: UNK
     Route: 047
  9. RINDERON A [Concomitant]
     Dosage: UNK
     Route: 047
  10. DICLOD [Concomitant]
     Dosage: UNK
     Route: 047

REACTIONS (1)
  - Alanine aminotransferase increased [Recovering/Resolving]
